FAERS Safety Report 16223049 (Version 1)
Quarter: 2019Q2

REPORT INFORMATION
  Report Type: Spontaneous
  Country: US (occurrence: US)
  Receive Date: 20190422
  Receipt Date: 20190422
  Transmission Date: 20190711
  Serious: No
  Sender: FDA-Public Use
  Company Number: US-SA-2019SA109657

PATIENT
  Sex: Female

DRUGS (1)
  1. DUPIXENT [Suspect]
     Active Substance: DUPILUMAB
     Dosage: 300 MG, QOW
     Route: 058
     Dates: start: 20180228

REACTIONS (5)
  - Lacrimation increased [Recovering/Resolving]
  - Eye swelling [Recovering/Resolving]
  - Condition aggravated [Recovering/Resolving]
  - Eye pruritus [Recovering/Resolving]
  - Rash macular [Recovering/Resolving]

NARRATIVE: CASE EVENT DATE: 20190402
